FAERS Safety Report 12597890 (Version 2)
Quarter: 2016Q3

REPORT INFORMATION
  Report Type: Spontaneous
  Country: US (occurrence: US)
  Receive Date: 20160727
  Receipt Date: 20160902
  Transmission Date: 20161109
  Serious: Yes (Other)
  Sender: FDA-Public Use
  Company Number: US-PFIZER INC-2016359313

PATIENT
  Age: 63 Year
  Sex: Female

DRUGS (2)
  1. LYRICA [Suspect]
     Active Substance: PREGABALIN
     Indication: PAIN
  2. LYRICA [Suspect]
     Active Substance: PREGABALIN
     Indication: NERVE INJURY
     Dosage: 2 DF, 2X/DAY

REACTIONS (5)
  - Malaise [Unknown]
  - Panic reaction [Unknown]
  - Impaired work ability [Unknown]
  - Drug dependence [Unknown]
  - Nausea [Unknown]
